FAERS Safety Report 24302575 (Version 1)
Quarter: 2024Q3

REPORT INFORMATION
  Report Type: Spontaneous
  Country: GB (occurrence: GB)
  Receive Date: 20240910
  Receipt Date: 20240910
  Transmission Date: 20241017
  Serious: Yes (Other)
  Sender: Karo Pharma
  Company Number: GB-Karo Pharma-2161404

PATIENT
  Age: 36 Year
  Sex: Female
  Weight: 67 kg

DRUGS (7)
  1. TERBINAFINE [Suspect]
     Active Substance: TERBINAFINE
     Indication: Product used for unknown indication
     Dates: start: 20240531
  2. ITRACONAZOLE [Concomitant]
     Active Substance: ITRACONAZOLE
  3. TERBINAFINE [Concomitant]
     Active Substance: TERBINAFINE
     Dates: start: 20240628, end: 20240824
  4. DOXYCYCLINE [Concomitant]
     Active Substance: DOXYCYCLINE\DOXYCYCLINE HYCLATE
  5. AMOROLFINE [Concomitant]
     Active Substance: AMOROLFINE
  6. Hydrocortisone 1% / Clotrimazole 1% cream [Concomitant]
  7. Hydrocortisone 1% / Clotrimazole 1% [Concomitant]

REACTIONS (1)
  - Ageusia [Recovering/Resolving]
